FAERS Safety Report 20207655 (Version 2)
Quarter: 2022Q2

REPORT INFORMATION
  Report Type: Spontaneous
  Country: US (occurrence: US)
  Receive Date: 20211220
  Receipt Date: 20220411
  Transmission Date: 20220721
  Serious: Yes (Other)
  Sender: FDA-Public Use
  Company Number: US-NOVARTISTESTPH-NVSC2021US275305

PATIENT
  Age: 70 Year
  Sex: Male

DRUGS (17)
  1. DOCETAXEL [Suspect]
     Active Substance: DOCETAXEL
     Indication: Prostate cancer metastatic
     Dosage: UNK (CYCLE 1)
     Route: 065
     Dates: start: 20210209
  2. DOCETAXEL [Suspect]
     Active Substance: DOCETAXEL
     Dosage: UNK (CYCLE 2)
     Route: 065
     Dates: start: 20210311
  3. DOCETAXEL [Suspect]
     Active Substance: DOCETAXEL
     Dosage: UNK (CYCLE 3)
     Route: 065
     Dates: start: 20210330
  4. DOCETAXEL [Suspect]
     Active Substance: DOCETAXEL
     Dosage: UNK (CYCLE 4)
     Route: 065
     Dates: start: 20210420
  5. DOCETAXEL [Suspect]
     Active Substance: DOCETAXEL
     Dosage: UNK (CYCLE 5)
     Route: 065
     Dates: start: 20210511
  6. DOCETAXEL [Suspect]
     Active Substance: DOCETAXEL
     Dosage: UNK (CYCLE 6)
     Route: 065
     Dates: start: 20210601
  7. DOCETAXEL [Suspect]
     Active Substance: DOCETAXEL
     Dosage: UNK (CYCLE 7)
     Route: 065
     Dates: start: 20210622
  8. DOCETAXEL [Suspect]
     Active Substance: DOCETAXEL
     Dosage: UNK (CYCLE 8)
     Route: 065
     Dates: start: 20210714
  9. DOCETAXEL [Suspect]
     Active Substance: DOCETAXEL
     Dosage: UNK (CYCLE 9)
     Route: 065
     Dates: start: 20210824
  10. DOCETAXEL [Suspect]
     Active Substance: DOCETAXEL
     Dosage: UNK (CYCLE 10, LAST INFUSION)
     Route: 065
     Dates: start: 20210914
  11. LUPRON [Concomitant]
     Active Substance: LEUPROLIDE ACETATE
     Indication: Product used for unknown indication
     Dosage: UNK
     Route: 065
     Dates: start: 2019
  12. SANCTURA [Concomitant]
     Active Substance: TROSPIUM CHLORIDE
     Indication: Pollakiuria
     Dosage: 20 MG
     Route: 048
  13. KENALOG [Concomitant]
     Active Substance: TRIAMCINOLONE ACETONIDE
     Indication: Rash
     Dosage: 0.1 %
     Route: 061
  14. LIPITOR [Concomitant]
     Active Substance: ATORVASTATIN CALCIUM
     Indication: Product used for unknown indication
     Dosage: 40 MG
     Route: 048
  15. ZOFRAN [Concomitant]
     Active Substance: ONDANSETRON HYDROCHLORIDE
     Indication: Product used for unknown indication
     Dosage: 8 MG
     Route: 048
  16. TRIUMEQ [Concomitant]
     Active Substance: ABACAVIR SULFATE\DOLUTEGRAVIR SODIUM\LAMIVUDINE
     Indication: Asymptomatic HIV infection
     Dosage: UNK (600-50-300 MG)
     Route: 048
  17. LUPRON DEPOT [Concomitant]
     Active Substance: LEUPROLIDE ACETATE
     Indication: Product used for unknown indication
     Dosage: 22.5 MG (3 MONTH)
     Route: 065

REACTIONS (8)
  - Pulmonary embolism [Unknown]
  - Prostate cancer metastatic [Unknown]
  - Malignant neoplasm progression [Unknown]
  - Prostatic specific antigen increased [Unknown]
  - Fatigue [Unknown]
  - Asthenia [Unknown]
  - Arthralgia [Unknown]
  - Abdominal pain [Unknown]
